FAERS Safety Report 20739292 (Version 1)
Quarter: 2022Q2

REPORT INFORMATION
  Report Type: Spontaneous
  Country: NL (occurrence: NL)
  Receive Date: 20220422
  Receipt Date: 20220422
  Transmission Date: 20220720
  Serious: Yes (Hospitalization)
  Sender: FDA-Public Use
  Company Number: None

PATIENT
  Sex: Male
  Weight: 90 kg

DRUGS (3)
  1. ZYPADHERA [Suspect]
     Active Substance: OLANZAPINE PAMOATE
     Indication: Product used for unknown indication
     Dosage: SUSPENSION FOR INJECTION, 300 MG (MILLIGRAMS),
     Route: 065
     Dates: start: 2021
  2. ZYPADHERA [Suspect]
     Active Substance: OLANZAPINE PAMOATE
     Indication: Product used for unknown indication
     Dosage: SUSPENSION FOR INJECTION, 300 MG (MILLIGRAMS),
     Route: 065
     Dates: start: 2021
  3. ZYPADHERA [Suspect]
     Active Substance: OLANZAPINE PAMOATE
     Indication: Product used for unknown indication
     Dosage: SUSPENSION FOR INJECTION, 300 MG (MILLIGRAMS),
     Route: 065
     Dates: start: 2021

REACTIONS (1)
  - Suicidal ideation [Not Recovered/Not Resolved]
